FAERS Safety Report 5503784-4 (Version None)
Quarter: 2007Q4

REPORT INFORMATION
  Report Type: 
  Country: None (occurrence: None)
  Receive Date: 20071101
  Receipt Date: 20071029
  Transmission Date: 20080405
  Serious: Yes (Other)
  Sender: FDA-Public Use
  Company Number: TW-BRISTOL-MYERS SQUIBB COMPANY-13960380

PATIENT
  Age: 70 Year
  Sex: Male

DRUGS (5)
  1. WARFARIN SODIUM [Suspect]
  2. FUROSEMIDE [Concomitant]
  3. LOSARTAN POTASSIUM [Concomitant]
  4. METHYLDOPA [Concomitant]
  5. CARVEDILOL [Concomitant]

REACTIONS (4)
  - CARDIAC TAMPONADE [None]
  - INTERNATIONAL NORMALISED RATIO INCREASED [None]
  - PERICARDIAL HAEMORRHAGE [None]
  - PLEURAL EFFUSION [None]
